FAERS Safety Report 6644383 (Version 1)
Quarter: 2020Q3

REPORT INFORMATION
  Report Type: Spontaneous
  Country: US (occurrence: None)
  Receive Date: 20080508
  Receipt Date: 20080508
  Transmission Date: 20201105
  Serious: Yes (Disabling)
  Sender: FDA-Public Use
  Company Number: None

PATIENT
  Age: 54 Year
  Sex: Female
  Weight: 63.56 kg

DRUGS (5)
  1. ARTIFICIAL TEARS [Concomitant]
  2. HOMATROPINE HYDROBROMIDE. [Suspect]
     Active Substance: HOMATROPINE HYDROBROMIDE
     Indication: IRITIS
     Dosage: (3X DAILY, REDUCED TO 2X, 1X DAILY OPTHALMIC)
     Route: 047
     Dates: start: 20080210, end: 20080227
  3. XIBROM [Concomitant]
     Active Substance: BROMFENAC SODIUM
  4. PRED FORTE [Concomitant]
     Active Substance: PREDNISOLONE ACETATE
  5. SYNTHROID [Concomitant]
     Active Substance: LEVOTHYROXINE SODIUM

REACTIONS (6)
  - Vision blurred [None]
  - Migraine [None]
  - Vitreous floaters [None]
  - Photopsia [None]
  - Vitreous detachment [None]
  - Visual acuity reduced [None]

NARRATIVE: CASE EVENT DATE: 20080211
